FAERS Safety Report 18945982 (Version 1)
Quarter: 2021Q1

REPORT INFORMATION
  Report Type: Report from Study
  Country: US (occurrence: US)
  Receive Date: 20210226
  Receipt Date: 20210226
  Transmission Date: 20210420
  Serious: Yes (Other)
  Sender: FDA-Public Use
  Company Number: US-BAYER-2021-074836

PATIENT
  Age: 63 Year
  Sex: Female
  Weight: 97.51 kg

DRUGS (3)
  1. WARFARIN [Concomitant]
     Active Substance: WARFARIN
  2. UPTRAVI [Suspect]
     Active Substance: SELEXIPAG
     Dosage: 200 MICROGRAM
     Dates: start: 202101
  3. ADEMPAS [Suspect]
     Active Substance: RIOCIGUAT
     Indication: PULMONARY ARTERIAL HYPERTENSION
     Dosage: 2.5 MG, TID
     Route: 048
     Dates: start: 20210212

REACTIONS (3)
  - Nausea [Recovering/Resolving]
  - Urticaria [Unknown]
  - Dyspnoea [Recovering/Resolving]
